FAERS Safety Report 5930978-6 (Version None)
Quarter: 2008Q4

REPORT INFORMATION
  Report Type: 
  Country: None (occurrence: None)
  Receive Date: 20081022
  Receipt Date: 20081009
  Transmission Date: 20090506
  Serious: Yes (Hospitalization, Other)
  Sender: FDA-Public Use
  Company Number: ENT 2008-0130

PATIENT
  Age: 83 Year
  Sex: Male

DRUGS (11)
  1. ENTACAPONE [Suspect]
     Indication: PARKINSON'S DISEASE
     Dosage: 200 MG/ BD (AT 12 AND 16)
     Route: 048
     Dates: start: 20080626, end: 20080715
  2. SINEMET [Concomitant]
  3. SINEMET CR [Concomitant]
  4. TRIMIPRAMINE MALEATE [Concomitant]
  5. FINASTERIDE [Concomitant]
  6. TAMSULOSIN MR [Concomitant]
  7. SENNA [Concomitant]
  8. ASPIRIN [Concomitant]
  9. CITALOPRAM HYDROBROMIDE [Concomitant]
  10. SIMVASTATIN [Concomitant]
  11. PERINDOPRIL [Concomitant]

REACTIONS (2)
  - COMA [None]
  - SUDDEN ONSET OF SLEEP [None]
